FAERS Safety Report 19063952 (Version 3)
Quarter: 2021Q2

REPORT INFORMATION
  Report Type: Spontaneous
  Country: US (occurrence: US)
  Receive Date: 20210326
  Receipt Date: 20210408
  Transmission Date: 20210717
  Serious: Yes (Other)
  Sender: FDA-Public Use
  Company Number: US-AMGEN-USASP2021043020

PATIENT
  Age: 64 Year
  Sex: Female
  Weight: 59 kg

DRUGS (13)
  1. ZITHROMAX [Concomitant]
     Active Substance: AZITHROMYCIN DIHYDRATE
     Dosage: 250 MILLIGRAM, BID
  2. PROLIA [Suspect]
     Active Substance: DENOSUMAB
     Indication: OSTEOPOROSIS POSTMENOPAUSAL
     Dosage: 60 MILLIGRAM, Q6MO
     Route: 058
     Dates: start: 20150623, end: 20181114
  3. ESTRACE [Concomitant]
     Active Substance: ESTRADIOL
     Dosage: 1 GRAM, QWK
  4. VALTREX [Concomitant]
     Active Substance: VALACYCLOVIR HYDROCHLORIDE
     Dosage: 1000 MILLIGRAM, Q12H
  5. CALCIUM CARBONATE. [Concomitant]
     Active Substance: CALCIUM CARBONATE
     Dosage: AS DIRECTED
  6. THERAGRAN [ASCORBIC ACID;CALCIUM PANTOTHENATE;CYANOCOBALAMIN;ERGOCALCI [Concomitant]
     Dosage: UNK UNK, QD
  7. PNEUMOCOCCAL POLYSACCHARIDE VACCINE [Concomitant]
     Active Substance: PNEUMOCOCCAL VACCINE POLYVALENT
     Dosage: UNK
  8. VITAMIN D3 [Concomitant]
     Active Substance: CHOLECALCIFEROL
     Dosage: 1000 UNIT, QD
  9. FISH OIL [Concomitant]
     Active Substance: FISH OIL
     Dosage: UNK
     Dates: end: 20130627
  10. MOBIC [Concomitant]
     Active Substance: MELOXICAM
     Dosage: 15 MILLIGRAM, QD
  11. TYLENOL [Concomitant]
     Active Substance: ACETAMINOPHEN
     Dosage: 1000 MILLIGRAM, QD
  12. ZITHROMAX [Concomitant]
     Active Substance: AZITHROMYCIN DIHYDRATE
     Dosage: UNK, QD
  13. BIOTIN [Concomitant]
     Active Substance: BIOTIN
     Dosage: 600 MILLIGRAM, QD

REACTIONS (11)
  - Gingival bleeding [Unknown]
  - Gingival discolouration [Unknown]
  - Illness [Unknown]
  - Pyrexia [Unknown]
  - Sinusitis [Unknown]
  - Osteonecrosis of jaw [Unknown]
  - Gingival pain [Unknown]
  - Device physical property issue [Unknown]
  - Constipation [Unknown]
  - Hip arthroplasty [Unknown]
  - Dental caries [Unknown]

NARRATIVE: CASE EVENT DATE: 20180313
